FAERS Safety Report 21740356 (Version 1)
Quarter: 2022Q4

REPORT INFORMATION
  Report Type: Spontaneous
  Country: US (occurrence: None)
  Receive Date: 20221216
  Receipt Date: 20221216
  Transmission Date: 20230112
  Serious: No
  Sender: FDA-Public Use
  Company Number: US-Merck Healthcare KGaA-9370691

PATIENT
  Age: 41 Year
  Sex: Male

DRUGS (2)
  1. MAVENCLAD [Suspect]
     Active Substance: CLADRIBINE
     Indication: Multiple sclerosis
     Dosage: YEAR ONE MONTH ONE THERAPY
     Dates: start: 20221101, end: 20221105
  2. MAVENCLAD [Suspect]
     Active Substance: CLADRIBINE
     Dosage: YEAR ONE MONTH TWO THERAPY: TWO TABLETS ON DAYS 1 TO 3 AND ONE TABLET ON DAYS 4 TO 5
     Dates: start: 20221129, end: 20221203

REACTIONS (2)
  - Asthenia [Unknown]
  - Headache [Unknown]

NARRATIVE: CASE EVENT DATE: 20221202
